FAERS Safety Report 5188295-0 (Version None)
Quarter: 2006Q4

REPORT INFORMATION
  Report Type: 
  Country: None (occurrence: None)
  Receive Date: 20061221
  Receipt Date: 20061218
  Transmission Date: 20070319
  Serious: Yes (Life-Threatening, Other)
  Sender: FDA-Public Use
  Company Number: GB-GLAXOSMITHKLINE-B0451449A

PATIENT
  Age: 46 Year
  Sex: Female

DRUGS (18)
  1. AMOXICILLIN [Suspect]
     Dosage: 1G UNKNOWN
     Route: 065
  2. DICLOFENAC SODIUM [Suspect]
     Dosage: 75MG UNKNOWN
     Route: 042
  3. EPHEDRINE [Suspect]
     Indication: HYPOTENSION
     Dosage: 6MG UNKNOWN
     Route: 065
  4. FENTANYL [Suspect]
     Route: 065
  5. GLYCOPYRROLATE [Suspect]
     Route: 065
  6. ISOFLURANE [Suspect]
     Route: 065
  7. MORPHINE [Suspect]
     Route: 065
  8. NEOSTIGMINE [Suspect]
     Route: 065
  9. NITROUS OXIDE W/ OXYGEN [Suspect]
     Route: 065
  10. ONDANSETRON HCL [Suspect]
     Dosage: 4MG UNKNOWN
     Route: 065
  11. OXYGEN [Suspect]
     Route: 065
  12. PROPOFOL [Suspect]
     Route: 065
  13. VECURONIUM BROMIDE [Suspect]
     Route: 065
  14. CO-DYDRAMOL [Concomitant]
  15. DIAZEPAM [Concomitant]
  16. ESCITALOPRAM OXALATE [Concomitant]
  17. NORETHINDRONE ACETATE [Concomitant]
  18. ZOLPIDEM TARTRATE [Concomitant]

REACTIONS (4)
  - ABDOMINAL DISTENSION [None]
  - ACUTE HEPATIC FAILURE [None]
  - STRIDOR [None]
  - TACHYCARDIA [None]
